FAERS Safety Report 24823124 (Version 1)
Quarter: 2025Q1

REPORT INFORMATION
  Report Type: Spontaneous
  Country: CN (occurrence: CN)
  Receive Date: 20250109
  Receipt Date: 20250109
  Transmission Date: 20250408
  Serious: Yes (Hospitalization)
  Sender: TEVA
  Company Number: CN-TEVA-VS-3283565

PATIENT
  Age: 65 Year
  Sex: Male

DRUGS (2)
  1. BENDAMUSTINE HYDROCHLORIDE [Suspect]
     Active Substance: BENDAMUSTINE HYDROCHLORIDE
     Indication: Angioimmunoblastic T-cell lymphoma
     Dosage: FOR INJECTION, TREANDA, MANUFACTURER-PHARMACHEMIE B.V
     Route: 041
     Dates: start: 20241103, end: 20241104
  2. DECITABINE [Suspect]
     Active Substance: DECITABINE
     Indication: Angioimmunoblastic T-cell lymphoma
     Dosage: MANUFACTURER-HANGZHOU WESTPHARMA (CHINA) CO.,LTD
     Route: 041
     Dates: start: 20241029, end: 20241029

REACTIONS (1)
  - Myelosuppression [Recovering/Resolving]

NARRATIVE: CASE EVENT DATE: 20241119
